FAERS Safety Report 20772697 (Version 2)
Quarter: 2022Q2

REPORT INFORMATION
  Report Type: Spontaneous
  Country: TR (occurrence: None)
  Receive Date: 20220502
  Receipt Date: 20220510
  Transmission Date: 20220721
  Serious: Yes (Hospitalization)
  Sender: FDA-Public Use
  Company Number: TR-VistaPharm, Inc.-VER202204-000412

PATIENT
  Age: 34 Year
  Sex: Female

DRUGS (1)
  1. ACETAMINOPHEN\HYDROCODONE [Suspect]
     Active Substance: ACETAMINOPHEN\HYDROCODONE
     Indication: Product used for unknown indication
     Dosage: 33 G (66 TABLETS, EACH CONTAINING 500 MG)
     Route: 048

REACTIONS (4)
  - Pleural effusion [Unknown]
  - Overdose [Unknown]
  - Intentional overdose [Unknown]
  - Suicide attempt [Unknown]
